FAERS Safety Report 9519550 (Version 1)
Quarter: 2013Q3

REPORT INFORMATION
  Report Type: Spontaneous
  Country: US (occurrence: US)
  Receive Date: 20130912
  Receipt Date: 20130912
  Transmission Date: 20140515
  Serious: Yes (Other)
  Sender: FDA-Public Use
  Company Number: PHHY2013US097850

PATIENT
  Age: 61 Year
  Sex: Male

DRUGS (3)
  1. 5-FLUOROURACIL [Suspect]
     Indication: GASTRIC CANCER STAGE IV
  2. EPIRUBICIN [Concomitant]
     Indication: GASTRIC CANCER STAGE IV
  3. CISPLATIN [Concomitant]
     Indication: GASTRIC CANCER STAGE IV

REACTIONS (8)
  - Coronary artery disease [Recovered/Resolved]
  - Cardiotoxicity [Recovered/Resolved]
  - Chest pain [Recovered/Resolved]
  - Chest discomfort [Recovered/Resolved]
  - Dyspnoea [Recovered/Resolved]
  - Hyperhidrosis [Recovered/Resolved]
  - Palpitations [Recovered/Resolved]
  - Ventricular tachycardia [Recovered/Resolved]
